FAERS Safety Report 10884334 (Version 1)
Quarter: 2015Q1

REPORT INFORMATION
  Report Type: Spontaneous
  Country: US (occurrence: None)
  Receive Date: 20150226
  Receipt Date: 20150226
  Transmission Date: 20150721
  Serious: Yes (Other)
  Sender: FDA-Public Use
  Company Number: None

PATIENT
  Age: 1 Month
  Sex: Male
  Weight: 91.63 kg

DRUGS (2)
  1. SILDENAFIL. [Suspect]
     Active Substance: SILDENAFIL
     Indication: ERECTILE DYSFUNCTION
     Dosage: 1 TABLET PRN/AS NEEDED ORAL
     Route: 048
     Dates: start: 20140919, end: 20141001
  2. SILDENAFIL 20MG [Concomitant]
     Active Substance: SILDENAFIL

REACTIONS (1)
  - Drug ineffective [None]

NARRATIVE: CASE EVENT DATE: 20140919
